FAERS Safety Report 6477969-7 (Version None)
Quarter: 2009Q4

REPORT INFORMATION
  Report Type: 
  Country: None (occurrence: None)
  Receive Date: 20091207
  Receipt Date: 20091125
  Transmission Date: 20100525
  Serious: Yes (Life-Threatening, Hospitalization, Other)
  Sender: FDA-Public Use
  Company Number: B0578305B

PATIENT
  Sex: Female

DRUGS (4)
  1. MALARONE [Suspect]
     Indication: PROPHYLAXIS
     Dates: start: 20080911
  2. FOLIC ACID [Concomitant]
  3. PREGADAY [Concomitant]
  4. VITAMINES [Concomitant]

REACTIONS (1)
  - NEONATAL ASPHYXIA [None]
